FAERS Safety Report 19138225 (Version 1)
Quarter: 2021Q2

REPORT INFORMATION
  Report Type: Spontaneous
  Country: CA (occurrence: CA)
  Receive Date: 20210414
  Receipt Date: 20210414
  Transmission Date: 20210717
  Serious: Yes (Other)
  Sender: FDA-Public Use
  Company Number: CA-JNJFOC-20201016847

PATIENT
  Age: 51 Year
  Sex: Female

DRUGS (3)
  1. RHINOCORT AQUA [Suspect]
     Active Substance: BUDESONIDE
     Indication: HYPERSENSITIVITY
  2. RHINOCORT AQUA [Suspect]
     Active Substance: BUDESONIDE
     Indication: INFLAMMATION
     Dosage: 2 SPRAYS TWICE DAILY INTERNASALLY RHINARIS ATOMIZER 2 SPRAYS IN EACH NOSTRIL EVERY 4 HOURS USED ONCE
     Dates: start: 20191004, end: 20191004
  3. RHINARIS                           /00075401/ [Concomitant]
     Indication: PRODUCT USED FOR UNKNOWN INDICATION
     Route: 065

REACTIONS (7)
  - Dizziness [Recovering/Resolving]
  - Tachycardia [Recovering/Resolving]
  - Tremor [Recovering/Resolving]
  - Fall [Recovering/Resolving]
  - Vomiting [Recovering/Resolving]
  - Nausea [Recovering/Resolving]
  - Dyspnoea [Recovering/Resolving]

NARRATIVE: CASE EVENT DATE: 20191004
